FAERS Safety Report 7524993-9 (Version None)
Quarter: 2011Q2

REPORT INFORMATION
  Report Type: 
  Country: None (occurrence: None)
  Receive Date: 20110606
  Receipt Date: 20110530
  Transmission Date: 20111010
  Serious: Yes (Death, Other)
  Sender: FDA-Public Use
  Company Number: JP-ASTELLAS-2011JP003356

PATIENT
  Sex: Male
  Weight: 61 kg

DRUGS (11)
  1. AMBISOME [Concomitant]
     Indication: FUNGAL INFECTION
     Dosage: 200 MG, UID/QD
     Route: 042
     Dates: start: 20081109, end: 20081124
  2. PROGRAF [Suspect]
     Indication: PROPHYLAXIS AGAINST GRAFT VERSUS HOST DISEASE
     Dosage: 1.4 MG, UID/QD
     Route: 041
     Dates: start: 20080702, end: 20080722
  3. NEUTROGIN [Concomitant]
     Indication: INFECTION
     Dosage: 250 UG, UNKNOWN/D
     Route: 042
     Dates: start: 20081108, end: 20081114
  4. PREDNISOLONE [Concomitant]
     Indication: GRAFT VERSUS HOST DISEASE
     Dosage: 60 MG, BID
     Route: 042
     Dates: start: 20080722, end: 20081107
  5. METHOTREXATE [Concomitant]
     Indication: PROPHYLAXIS AGAINST GRAFT VERSUS HOST DISEASE
     Route: 065
  6. FUNGUARD [Concomitant]
     Dosage: 150 MG, UID/QD
     Route: 042
     Dates: start: 20080727, end: 20081108
  7. DIFLUCAN [Concomitant]
     Indication: INFECTION PROPHYLAXIS
     Dosage: 200 MG, UID/QD
     Route: 048
     Dates: start: 20080622, end: 20080719
  8. FUNGUARD [Concomitant]
     Indication: INFECTION PROPHYLAXIS
     Dosage: 50 MG, UID/QD
     Route: 042
     Dates: start: 20080720, end: 20080726
  9. MAXIPIME [Concomitant]
     Indication: PYREXIA
     Dosage: 1 G, QID
     Route: 042
     Dates: start: 20081107, end: 20081115
  10. SOL MEDROL [Concomitant]
     Dosage: 250 MG, UID/QD
     Route: 042
     Dates: start: 20081111, end: 20081124
  11. SOL MEDROL [Concomitant]
     Indication: GRAFT VERSUS HOST DISEASE
     Dosage: 1000 MG, UID/QD
     Route: 042
     Dates: start: 20081108, end: 20081110

REACTIONS (4)
  - ASPERGILLOSIS [None]
  - FUNGAL INFECTION [None]
  - DRUG INEFFECTIVE [None]
  - ACUTE GRAFT VERSUS HOST DISEASE [None]
